FAERS Safety Report 5449510-9 (Version None)
Quarter: 2007Q3

REPORT INFORMATION
  Report Type: 
  Country: None (occurrence: None)
  Receive Date: 20070907
  Receipt Date: 20070823
  Transmission Date: 20080115
  Serious: Yes (Hospitalization, Other)
  Sender: FDA-Public Use
  Company Number: 2007US-09385

PATIENT
  Age: 43 Year
  Sex: Female

DRUGS (1)
  1. BISACODYL (BISACODYL) UNKNOWN, 5MG [Suspect]
     Indication: INCONTINENCE
     Dosage: 5 MG, 2 TABLETS QD, ORAL
     Route: 048
     Dates: start: 20070807, end: 20070807

REACTIONS (2)
  - COLITIS [None]
  - RECTAL HAEMORRHAGE [None]
